FAERS Safety Report 17854291 (Version 6)
Quarter: 2020Q3

REPORT INFORMATION
  Report Type: Spontaneous
  Country: PL (occurrence: PL)
  Receive Date: 20200603
  Receipt Date: 20200814
  Transmission Date: 20201103
  Serious: Yes (Death, Life-Threatening, Hospitalization, Other)
  Sender: FDA-Public Use
  Company Number: PL-AUROBINDO-AUR-APL-2020-027155

PATIENT
  Age: 68 Year
  Sex: Male

DRUGS (28)
  1. BISOPROLOL [Suspect]
     Active Substance: BISOPROLOL
     Indication: HYPERTENSION
     Dosage: UNK
     Route: 065
  2. DABIGATRAN [Suspect]
     Active Substance: DABIGATRAN
     Indication: ATRIAL FIBRILLATION
     Dosage: UNK
     Route: 048
     Dates: start: 201601
  3. NORADRENALINE [Concomitant]
     Active Substance: NOREPINEPHRINE
     Indication: PRODUCT USED FOR UNKNOWN INDICATION
     Dosage: UNK
     Route: 065
  4. IPRATROPIUM BROMIDE. [Concomitant]
     Active Substance: IPRATROPIUM BROMIDE
     Indication: CHRONIC OBSTRUCTIVE PULMONARY DISEASE
     Dosage: UNK
     Route: 055
  5. HEPARIN [Suspect]
     Active Substance: HEPARIN SODIUM
     Indication: PRODUCT USED FOR UNKNOWN INDICATION
     Dosage: UNK
     Route: 042
     Dates: start: 20160812
  6. NOREPINEPHRINE. [Suspect]
     Active Substance: NOREPINEPHRINE
     Indication: POST PROCEDURAL HAEMORRHAGE
     Dosage: UNK, (INCREASING DOSES)
     Route: 065
  7. LACIDIPINE [Concomitant]
     Active Substance: LACIDIPINE
     Indication: HYPERTENSION
     Dosage: UNK
     Route: 065
  8. RIVAROXABAN 20 MG [Suspect]
     Active Substance: RIVAROXABAN
     Indication: PRODUCT USED FOR UNKNOWN INDICATION
     Dosage: 20 MILLIGRAM, ONCE A DAY
     Route: 065
     Dates: start: 201510
  9. ACETYLSALICYLIC ACID [Suspect]
     Active Substance: ASPIRIN
     Dosage: 300 MILLIGRAM
     Route: 065
     Dates: start: 20160812
  10. CLOPIDOGREL [Suspect]
     Active Substance: CLOPIDOGREL BISULFATE
     Indication: AORTIC DISSECTION
     Dosage: 600 MILLIGRAM
     Route: 065
     Dates: start: 20160812, end: 201608
  11. DABIGATRAN [Suspect]
     Active Substance: DABIGATRAN
     Dosage: 150 MILLIGRAM, TWO TIMES A DAY
     Route: 065
     Dates: start: 201603
  12. HEPARIN [Concomitant]
     Active Substance: HEPARIN SODIUM
     Indication: PRODUCT USED FOR UNKNOWN INDICATION
     Dosage: UNK
     Route: 042
  13. CLOPIDOGREL [Suspect]
     Active Substance: CLOPIDOGREL BISULFATE
     Indication: PERCUTANEOUS CORONARY INTERVENTION
  14. DABIGATRAN [Suspect]
     Active Substance: DABIGATRAN
     Dosage: 100 MILLIGRAM, TWO TIMES A DAY
     Route: 065
  15. XARELTO [Suspect]
     Active Substance: RIVAROXABAN
     Indication: PRODUCT USED FOR UNKNOWN INDICATION
     Dosage: 20 MILLIGRAM, ONCE A DAY
     Route: 065
     Dates: start: 201510
  16. RIVAROXABAN 20 MG [Suspect]
     Active Substance: RIVAROXABAN
     Dosage: 300 MILLIGRAM
     Route: 065
  17. DABIGATRAN [Suspect]
     Active Substance: DABIGATRAN
     Dosage: 110 MILLIGRAM, EVERY OTHER DAY
     Route: 048
     Dates: start: 201601
  18. EPINEPHRINE. [Suspect]
     Active Substance: EPINEPHRINE
     Indication: POST PROCEDURAL HAEMORRHAGE
     Dosage: UNK, INCREASING DOSES
     Route: 065
  19. FORMOTEROL [Concomitant]
     Active Substance: FORMOTEROL
     Indication: PRODUCT USED FOR UNKNOWN INDICATION
     Dosage: UNK
     Route: 055
  20. PRAXBIND [Concomitant]
     Active Substance: IDARUCIZUMAB
     Indication: PRODUCT USED FOR UNKNOWN INDICATION
     Dosage: 2500 MILLIGRAM (2.5 G TWICE WITHIN 10 MINUTES)
     Route: 065
     Dates: start: 201608
  21. ACETYLSALICYLIC ACID [Suspect]
     Active Substance: ASPIRIN
     Indication: ACUTE CORONARY SYNDROME
     Dosage: 300 MILLIGRAM ONCE
     Route: 048
     Dates: start: 201608
  22. IDARUCIZUMAB [Concomitant]
     Active Substance: IDARUCIZUMAB
     Indication: PRODUCT USED FOR UNKNOWN INDICATION
     Dosage: 2.5 MILLIGRAM, TWO TIMES A DAY (2.5 MILLIGRAM (X2) WITHIN 10 MIN)
     Route: 065
  23. CLOPIDOGREL [Suspect]
     Active Substance: CLOPIDOGREL BISULFATE
     Indication: ACUTE CORONARY SYNDROME
     Dosage: 600 MILLIGRAM ONCE
     Route: 048
     Dates: start: 201608, end: 201608
  24. DABIGATRAN [Suspect]
     Active Substance: DABIGATRAN
     Dosage: UNK
     Route: 065
  25. DABIGATRAN [Suspect]
     Active Substance: DABIGATRAN
     Dosage: 150 MILLIGRAM, ONCE A DAY
     Route: 065
  26. FORMOTEROL [Concomitant]
     Active Substance: FORMOTEROL
     Indication: CHRONIC OBSTRUCTIVE PULMONARY DISEASE
  27. LEVOTHYROXINE. [Concomitant]
     Active Substance: LEVOTHYROXINE
     Indication: HYPOTHYROIDISM
     Dosage: UNK
     Route: 065
  28. PROTAMINE [Concomitant]
     Active Substance: PROTAMINE
     Indication: POST PROCEDURAL HAEMORRHAGE
     Dosage: 50 MILLIGRAM 1 TOTAL
     Route: 065
     Dates: start: 201608

REACTIONS (12)
  - Procedural haemorrhage [Fatal]
  - Shock [Fatal]
  - Shock haemorrhagic [Fatal]
  - Haematoma [Fatal]
  - Product administration error [Fatal]
  - Drug ineffective [Fatal]
  - Aortic dissection [Fatal]
  - Acute coronary syndrome [Unknown]
  - Product use in unapproved indication [Unknown]
  - Haemorrhage [Fatal]
  - Post procedural haemorrhage [Fatal]
  - Epistaxis [Fatal]

NARRATIVE: CASE EVENT DATE: 201608
